FAERS Safety Report 17625835 (Version 4)
Quarter: 2020Q2

REPORT INFORMATION
  Report Type: Report from Study
  Country: US (occurrence: US)
  Receive Date: 20200404
  Receipt Date: 20200616
  Transmission Date: 20200713
  Serious: No
  Sender: FDA-Public Use
  Company Number: NVSC2020US092107

PATIENT
  Sex: Female

DRUGS (1)
  1. PIQRAY [Suspect]
     Active Substance: ALPELISIB
     Indication: PRODUCT USED FOR UNKNOWN INDICATION
     Dosage: UNK
     Route: 048

REACTIONS (11)
  - Urinary tract infection [Unknown]
  - Dry skin [Unknown]
  - Seasonal allergy [Unknown]
  - Blood glucose increased [Unknown]
  - Cough [Unknown]
  - Nausea [Unknown]
  - Dysuria [Unknown]
  - Fatigue [Unknown]
  - Poor quality sleep [Unknown]
  - Product container issue [Unknown]
  - Diarrhoea [Unknown]
